FAERS Safety Report 11704221 (Version 1)
Quarter: 2015Q4

REPORT INFORMATION
  Report Type: Spontaneous
  Country: PL (occurrence: PL)
  Receive Date: 20151106
  Receipt Date: 20151106
  Transmission Date: 20160304
  Serious: Yes (Hospitalization, Other)
  Sender: FDA-Public Use
  Company Number: PL-WATSON-2015-12718

PATIENT
  Sex: Male

DRUGS (4)
  1. TACROLIMUS (UNKNOWN) [Suspect]
     Active Substance: TACROLIMUS
     Indication: PROPHYLAXIS AGAINST TRANSPLANT REJECTION
     Dosage: UNKNOWN
     Route: 065
  2. TAMOXIFEN (UNKNOWN) [Suspect]
     Active Substance: TAMOXIFEN
     Indication: ENCAPSULATING PERITONEAL SCLEROSIS
     Dosage: 20 MG, DAILY, LONG TERM
     Route: 065
  3. TAMOXIFEN (UNKNOWN) [Suspect]
     Active Substance: TAMOXIFEN
     Indication: OFF LABEL USE
  4. MYCOPHENOLATE MOFETIL. [Concomitant]
     Active Substance: MYCOPHENOLATE MOFETIL
     Indication: PROPHYLAXIS AGAINST TRANSPLANT REJECTION
     Dosage: UNKNOWN
     Route: 065

REACTIONS (3)
  - Intestinal obstruction [Recovered/Resolved with Sequelae]
  - Encapsulating peritoneal sclerosis [Recovered/Resolved with Sequelae]
  - Off label use [Unknown]
